FAERS Safety Report 7647985-8 (Version None)
Quarter: 2011Q3

REPORT INFORMATION
  Report Type: 
  Country: None (occurrence: None)
  Receive Date: 20110801
  Receipt Date: 20110621
  Transmission Date: 20111222
  Serious: No
  Sender: FDA-Public Use
  Company Number: US-ABBOTT-10P-163-0801603-00

PATIENT
  Sex: Male
  Weight: 68.181 kg

DRUGS (4)
  1. PANCRELIPASE [Concomitant]
     Indication: PANCREATIC INSUFFICIENCY
     Dosage: DAILY DOSE:  UNKNOWN, AS USED: 3 VIOKASE 16U WITH EACH MEAL
     Route: 048
     Dates: start: 20030101, end: 20100901
  2. FINASTERIDE [Concomitant]
     Indication: PROSTATOMEGALY
     Dosage: DAILY DOSE:  UNKNOWN
     Route: 065
  3. PANCREATIN TRIPLE STRENGTH CAP [Suspect]
     Indication: PANCREATIC INSUFFICIENCY
     Dosage: DAILY DOSE: 144U, AS USED: 48U, FOUR CREON 12U WITH EACH MEAL.
     Route: 048
     Dates: start: 20100922
  4. DOXAZOSIN MESILATE [Concomitant]
     Indication: BLOOD PRESSURE
     Dosage: DAILY DOSE:  UNKNOWN, FREQ: ONCE A DAY.
     Route: 065

REACTIONS (4)
  - HEADACHE [None]
  - DIZZINESS [None]
  - DRY MOUTH [None]
  - ABNORMAL FAECES [None]
